FAERS Safety Report 8455895 (Version 3)
Quarter: 2013Q3

REPORT INFORMATION
  Report Type: Report from Study
  Country: BR (occurrence: BR)
  Receive Date: 20120313
  Receipt Date: 20130913
  Transmission Date: 20140515
  Serious: Yes (Hospitalization, Other)
  Sender: FDA-Public Use
  Company Number: BR-ELI_LILLY_AND_COMPANY-BR201203000071

PATIENT
  Sex: Female
  Weight: 55 kg

DRUGS (5)
  1. TERIPARATIDE [Suspect]
     Indication: OSTEOPOROSIS
     Dosage: 20 UG, QD
     Route: 058
     Dates: start: 201108, end: 20130525
  2. CYMBALTA [Concomitant]
     Indication: DEPRESSION
     Dosage: 60 MG, BID
     Route: 065
  3. BUPROPION [Concomitant]
     Indication: DEPRESSION
     Dosage: 450 MG, QD
     Route: 065
  4. VALIUM [Concomitant]
     Indication: NERVOUSNESS
     Dosage: UNK, UNKNOWN
     Route: 065
  5. LYRICA [Concomitant]
     Indication: PAIN
     Dosage: 75 MG, QD
     Route: 065

REACTIONS (10)
  - Lower limb fracture [Recovering/Resolving]
  - Femur fracture [Recovering/Resolving]
  - Complication of device insertion [Unknown]
  - Procedural haemorrhage [Recovering/Resolving]
  - Haemorrhage [Unknown]
  - Hand fracture [Recovered/Resolved]
  - Fall [Recovering/Resolving]
  - Hip fracture [Recovering/Resolving]
  - Procedural complication [Unknown]
  - Accidental exposure to product [Unknown]
